FAERS Safety Report 11106975 (Version 1)
Quarter: 2015Q2

REPORT INFORMATION
  Report Type: Spontaneous
  Country: None (occurrence: None)
  Receive Date: 20150511
  Receipt Date: 20150511
  Transmission Date: 20150821
  Serious: Yes (Disabling)
  Sender: FDA-Public Use
  Company Number: None

PATIENT
  Age: 38 Year
  Sex: Female
  Weight: 90.72 kg

DRUGS (3)
  1. VITAMIN B12 [Concomitant]
     Active Substance: CYANOCOBALAMIN
  2. ZINC [Concomitant]
     Active Substance: ZINC\ZINC CHLORIDE
  3. LEVOFLOXACIN 500 MG ZYDUS [Suspect]
     Active Substance: LEVOFLOXACIN
     Indication: SINUSITIS
     Route: 048
     Dates: start: 20150413, end: 20150415

REACTIONS (6)
  - Arthralgia [None]
  - Hypoaesthesia [None]
  - Paraesthesia [None]
  - Pain in extremity [None]
  - Tendon pain [None]
  - Neuropathy peripheral [None]

NARRATIVE: CASE EVENT DATE: 20150414
